FAERS Safety Report 23379526 (Version 2)
Quarter: 2024Q1

REPORT INFORMATION
  Report Type: Spontaneous
  Country: NL (occurrence: NL)
  Receive Date: 20240108
  Receipt Date: 20240123
  Transmission Date: 20240410
  Serious: Yes (Death)
  Sender: FDA-Public Use
  Company Number: None

PATIENT
  Age: 20 Year
  Sex: Female
  Weight: 65 kg

DRUGS (1)
  1. DEPO-PROVERA [Suspect]
     Active Substance: MEDROXYPROGESTERONE ACETATE
     Indication: Contraception
     Dosage: 1 DF, EVERY 3 MONTHS (1X/12 WEEKS 1 INJECTION)
     Dates: start: 20220916

REACTIONS (2)
  - Pulmonary embolism [Fatal]
  - Cardiopulmonary failure [Fatal]
